FAERS Safety Report 7800135-7 (Version None)
Quarter: 2011Q4

REPORT INFORMATION
  Report Type: 
  Country: None (occurrence: None)
  Receive Date: 20111004
  Receipt Date: 20110926
  Transmission Date: 20120403
  Serious: Yes (Other)
  Sender: FDA-Public Use
  Company Number: 2011SP045394

PATIENT
  Age: 81 Year
  Sex: Female
  Weight: 55.3 kg

DRUGS (9)
  1. RAMIPRIL [Concomitant]
  2. SIMVASTATIN [Concomitant]
  3. VALDOXAN (OTHER ANTIDEPRESSANTS) [Suspect]
     Indication: MAJOR DEPRESSION
     Dosage: 25 MG, QD, PO
     Route: 048
     Dates: start: 20110730, end: 20110730
  4. LEVOTHYROXINE SODIUM [Concomitant]
  5. MIRTAZAPINE [Suspect]
     Indication: MAJOR DEPRESSION
     Dosage: QD, PO
     Route: 048
     Dates: start: 20100920
  6. OLANZAPINE [Suspect]
     Indication: MAJOR DEPRESSION
     Dosage: QD, PO
     Route: 048
     Dates: start: 20100413, end: 20100731
  7. ASPIRIN [Concomitant]
  8. ZOLPIDEM [Concomitant]
  9. LORAZEPAM [Concomitant]

REACTIONS (4)
  - HYPOTENSION [None]
  - ABDOMINAL PAIN [None]
  - DRUG INTERACTION [None]
  - SYNCOPE [None]
